FAERS Safety Report 20815303 (Version 1)
Quarter: 2022Q2

REPORT INFORMATION
  Report Type: Spontaneous
  Country: US (occurrence: US)
  Receive Date: 20220511
  Receipt Date: 20220511
  Transmission Date: 20220720
  Serious: Yes (Hospitalization, Other)
  Sender: FDA-Public Use
  Company Number: US-AMERICAN REGENT INC-2022001253

PATIENT
  Age: 80 Year
  Sex: Female
  Weight: 69.7 kg

DRUGS (4)
  1. VENOFER [Suspect]
     Active Substance: IRON SUCROSE
     Indication: Product used for unknown indication
     Dosage: UNK
     Route: 042
     Dates: start: 2022
  2. MIRCERA [Suspect]
     Active Substance: METHOXY POLYETHYLENE GLYCOL-EPOETIN BETA
     Indication: Nephrogenic anaemia
     Dosage: UNK, DOSES 1-6
     Route: 042
  3. MIRCERA [Suspect]
     Active Substance: METHOXY POLYETHYLENE GLYCOL-EPOETIN BETA
     Dosage: 100 MCG, 1 ONCE (DOSE 7)
     Route: 042
     Dates: start: 20220312, end: 20220312
  4. MIRCERA [Suspect]
     Active Substance: METHOXY POLYETHYLENE GLYCOL-EPOETIN BETA
     Dosage: 150 MCG, 1 ONCE (DOSE 8)
     Route: 042
     Dates: start: 20220326, end: 20220326

REACTIONS (3)
  - Drug hypersensitivity [Unknown]
  - Presyncope [Unknown]
  - Back pain [Unknown]

NARRATIVE: CASE EVENT DATE: 20220312
